FAERS Safety Report 24846221 (Version 1)
Quarter: 2025Q1

REPORT INFORMATION
  Report Type: Report from Study
  Country: US (occurrence: US)
  Receive Date: 20250115
  Receipt Date: 20250115
  Transmission Date: 20250408
  Serious: Yes (Death, Other)
  Sender: ALEXION PHARMACEUTICALS
  Company Number: US-AstraZeneca-CH-00785080A

PATIENT

DRUGS (4)
  1. SOLIRIS [Suspect]
     Active Substance: ECULIZUMAB
     Indication: Neuromyelitis optica spectrum disorder
  2. SOLIRIS [Suspect]
     Active Substance: ECULIZUMAB
     Route: 042
  3. SOLIRIS [Suspect]
     Active Substance: ECULIZUMAB
  4. SOLIRIS [Suspect]
     Active Substance: ECULIZUMAB
     Route: 042

REACTIONS (1)
  - Death [Fatal]
